FAERS Safety Report 25069290 (Version 1)
Quarter: 2025Q1

REPORT INFORMATION
  Report Type: Spontaneous
  Country: IT (occurrence: IT)
  Receive Date: 20250312
  Receipt Date: 20250312
  Transmission Date: 20250408
  Serious: Yes (Other)
  Sender: MYLAN
  Company Number: None

PATIENT
  Age: 76 Year
  Sex: Female

DRUGS (36)
  1. NORVASC [Suspect]
     Active Substance: AMLODIPINE BESYLATE
     Indication: Hypertension
  2. NORVASC [Suspect]
     Active Substance: AMLODIPINE BESYLATE
     Route: 048
  3. NORVASC [Suspect]
     Active Substance: AMLODIPINE BESYLATE
     Route: 048
  4. NORVASC [Suspect]
     Active Substance: AMLODIPINE BESYLATE
  5. JARDIANCE [Suspect]
     Active Substance: EMPAGLIFLOZIN
     Indication: Type 2 diabetes mellitus
     Dosage: 10 MILLIGRAM, QD (JARDIANCE*28 COATED TABLETS 10 MG: 1 TABLET DAILY)
     Dates: start: 20240529, end: 20240529
  6. JARDIANCE [Suspect]
     Active Substance: EMPAGLIFLOZIN
     Dosage: 10 MILLIGRAM, QD (JARDIANCE*28 COATED TABLETS 10 MG: 1 TABLET DAILY)
     Route: 048
     Dates: start: 20240529, end: 20240529
  7. JARDIANCE [Suspect]
     Active Substance: EMPAGLIFLOZIN
     Dosage: 10 MILLIGRAM, QD (JARDIANCE*28 COATED TABLETS 10 MG: 1 TABLET DAILY)
     Route: 048
     Dates: start: 20240529, end: 20240529
  8. JARDIANCE [Suspect]
     Active Substance: EMPAGLIFLOZIN
     Dosage: 10 MILLIGRAM, QD (JARDIANCE*28 COATED TABLETS 10 MG: 1 TABLET DAILY)
     Dates: start: 20240529, end: 20240529
  9. NOVORAPID [Concomitant]
     Active Substance: INSULIN ASPART
     Indication: Type 2 diabetes mellitus
  10. NOVORAPID [Concomitant]
     Active Substance: INSULIN ASPART
     Route: 058
  11. NOVORAPID [Concomitant]
     Active Substance: INSULIN ASPART
     Route: 058
  12. NOVORAPID [Concomitant]
     Active Substance: INSULIN ASPART
  13. TRESIBA [Concomitant]
     Active Substance: INSULIN DEGLUDEC
  14. TRESIBA [Concomitant]
     Active Substance: INSULIN DEGLUDEC
     Route: 058
  15. TRESIBA [Concomitant]
     Active Substance: INSULIN DEGLUDEC
     Route: 058
  16. TRESIBA [Concomitant]
     Active Substance: INSULIN DEGLUDEC
  17. HYDROCHLOROTHIAZIDE\OLMESARTAN MEDOXOMIL [Concomitant]
     Active Substance: HYDROCHLOROTHIAZIDE\OLMESARTAN MEDOXOMIL
     Indication: Hypertension
     Dosage: 45 MILLIGRAM, QD (PLAUNAZIDE*28 COATED TABLETS 20 MG + 25 MG: 1 TABLET/DAILY)
  18. HYDROCHLOROTHIAZIDE\OLMESARTAN MEDOXOMIL [Concomitant]
     Active Substance: HYDROCHLOROTHIAZIDE\OLMESARTAN MEDOXOMIL
     Dosage: 45 MILLIGRAM, QD (PLAUNAZIDE*28 COATED TABLETS 20 MG + 25 MG: 1 TABLET/DAILY)
     Route: 048
  19. HYDROCHLOROTHIAZIDE\OLMESARTAN MEDOXOMIL [Concomitant]
     Active Substance: HYDROCHLOROTHIAZIDE\OLMESARTAN MEDOXOMIL
     Dosage: 45 MILLIGRAM, QD (PLAUNAZIDE*28 COATED TABLETS 20 MG + 25 MG: 1 TABLET/DAILY)
     Route: 048
  20. HYDROCHLOROTHIAZIDE\OLMESARTAN MEDOXOMIL [Concomitant]
     Active Substance: HYDROCHLOROTHIAZIDE\OLMESARTAN MEDOXOMIL
     Dosage: 45 MILLIGRAM, QD (PLAUNAZIDE*28 COATED TABLETS 20 MG + 25 MG: 1 TABLET/DAILY)
  21. Simbatrix [Concomitant]
     Indication: Hypercholesterolaemia
  22. Simbatrix [Concomitant]
     Route: 048
  23. Simbatrix [Concomitant]
     Route: 048
  24. Simbatrix [Concomitant]
  25. Pantoprazolo Doc [Concomitant]
  26. Pantoprazolo Doc [Concomitant]
     Route: 048
  27. Pantoprazolo Doc [Concomitant]
     Route: 048
  28. Pantoprazolo Doc [Concomitant]
  29. METFORMIN HYDROCHLORIDE [Concomitant]
     Active Substance: METFORMIN HYDROCHLORIDE
     Indication: Type 2 diabetes mellitus
  30. METFORMIN HYDROCHLORIDE [Concomitant]
     Active Substance: METFORMIN HYDROCHLORIDE
     Route: 065
  31. METFORMIN HYDROCHLORIDE [Concomitant]
     Active Substance: METFORMIN HYDROCHLORIDE
     Route: 065
  32. METFORMIN HYDROCHLORIDE [Concomitant]
     Active Substance: METFORMIN HYDROCHLORIDE
  33. FERROUS SULFATE [Concomitant]
     Active Substance: FERROUS SULFATE
  34. FERROUS SULFATE [Concomitant]
     Active Substance: FERROUS SULFATE
     Route: 065
  35. FERROUS SULFATE [Concomitant]
     Active Substance: FERROUS SULFATE
     Route: 065
  36. FERROUS SULFATE [Concomitant]
     Active Substance: FERROUS SULFATE

REACTIONS (2)
  - Hypoglycaemia [Recovered/Resolved]
  - Loss of consciousness [Recovered/Resolved]

NARRATIVE: CASE EVENT DATE: 20240529
